FAERS Safety Report 7676801-3 (Version None)
Quarter: 2011Q3

REPORT INFORMATION
  Report Type: 
  Country: None (occurrence: None)
  Receive Date: 20110811
  Receipt Date: 20110728
  Transmission Date: 20111222
  Serious: Yes (Hospitalization)
  Sender: FDA-Public Use
  Company Number: FR-SANOFI-AVENTIS-2011SA048255

PATIENT
  Age: 49 Year
  Sex: Male

DRUGS (15)
  1. CEFTRIAXONE [Suspect]
     Route: 042
     Dates: start: 20110626, end: 20110630
  2. ESOMEPRAZOLE MAGNESIUM [Suspect]
     Route: 048
     Dates: start: 20110629, end: 20110702
  3. LOVENOX [Suspect]
     Route: 058
     Dates: start: 20110624, end: 20110630
  4. VITAMIN B1 AND B6 [Concomitant]
     Route: 048
     Dates: start: 20110628, end: 20110712
  5. ASPIRIN [Suspect]
     Route: 048
     Dates: start: 20110625, end: 20110705
  6. CETIRIZINE HCL [Concomitant]
     Route: 048
     Dates: start: 20110702, end: 20110705
  7. PANTOPRAZOLE [Suspect]
     Route: 042
     Dates: start: 20110623, end: 20110624
  8. PANTOPRAZOLE [Suspect]
     Route: 042
     Dates: start: 20110625, end: 20110628
  9. IMOVANE [Concomitant]
     Route: 048
     Dates: start: 20110702, end: 20110705
  10. TRAMADOL HCL [Concomitant]
     Route: 065
     Dates: start: 20110623, end: 20110624
  11. VITABACT [Concomitant]
     Dosage: 1 GOUT IN EACH EYE
     Route: 047
     Dates: start: 20110627, end: 20110710
  12. ZOLPIDEM [Suspect]
     Route: 048
     Dates: start: 20110628, end: 20110701
  13. OLMESARTAN MEDOXOMIL [Concomitant]
     Route: 048
     Dates: start: 20110625, end: 20110712
  14. BISOPROLOL FUMARATE [Concomitant]
     Route: 048
     Dates: start: 20110625, end: 20110712
  15. PHLOROGLUCINOL [Concomitant]
     Route: 065
     Dates: start: 20110627, end: 20110629

REACTIONS (2)
  - AGRANULOCYTOSIS [None]
  - NEUTROPENIA [None]
